FAERS Safety Report 18217143 (Version 6)
Quarter: 2020Q4

REPORT INFORMATION
  Report Type: Spontaneous
  Country: US (occurrence: US)
  Receive Date: 20200901
  Receipt Date: 20201214
  Transmission Date: 20210113
  Serious: Yes (Other)
  Sender: FDA-Public Use
  Company Number: US-PFIZER INC-2020331734

PATIENT
  Age: 59 Year
  Sex: Female
  Weight: 54.43 kg

DRUGS (3)
  1. LORBRENA [Suspect]
     Active Substance: LORLATINIB
     Indication: LUNG CARCINOMA CELL TYPE UNSPECIFIED STAGE IV
     Dosage: 100 MG, 1X/DAY
     Route: 048
     Dates: start: 20200810, end: 20200814
  2. LORBRENA [Suspect]
     Active Substance: LORLATINIB
     Dosage: 100 MG, ALTERNATE DAY (TAKE ONE (1) TABLET BY MOUTH EVERY OTHER DAY WITH OR WITHOUT FOOD)
     Route: 048
     Dates: end: 2020
  3. LORBRENA [Suspect]
     Active Substance: LORLATINIB
     Dosage: 100 MG, UNK

REACTIONS (17)
  - Discomfort [Unknown]
  - Psychiatric symptom [Unknown]
  - Memory impairment [Unknown]
  - Dizziness [Recovering/Resolving]
  - Vomiting [Recovered/Resolved]
  - Rash [Unknown]
  - Peripheral swelling [Unknown]
  - Gingival disorder [Unknown]
  - Cerebral disorder [Unknown]
  - Diarrhoea [Recovered/Resolved]
  - Illness [Unknown]
  - Nervousness [Unknown]
  - Anxiety [Unknown]
  - Mental impairment [Unknown]
  - Fatigue [Unknown]
  - Feeling drunk [Unknown]
  - Tooth disorder [Unknown]

NARRATIVE: CASE EVENT DATE: 2020
